FAERS Safety Report 26192181 (Version 1)
Quarter: 2025Q4

REPORT INFORMATION
  Report Type: Spontaneous
  Country: EU (occurrence: EU)
  Receive Date: 20251223
  Receipt Date: 20251223
  Transmission Date: 20260118
  Serious: Yes (Other)
  Sender: GILEAD
  Company Number: EU-GILEAD-2025-0742064

PATIENT
  Sex: Male

DRUGS (2)
  1. BULEVIRTIDE [Suspect]
     Active Substance: BULEVIRTIDE
     Indication: Product used for unknown indication
     Dosage: UNK
     Route: 065
  2. VIREAD [Suspect]
     Active Substance: TENOFOVIR DISOPROXIL FUMARATE
     Indication: Product used for unknown indication
     Dosage: UNK
     Route: 065

REACTIONS (1)
  - B-cell lymphoma [Unknown]
